FAERS Safety Report 7011741-4 (Version None)
Quarter: 2010Q3

REPORT INFORMATION
  Report Type: 
  Country: None (occurrence: None)
  Receive Date: 20100923
  Receipt Date: 20090709
  Transmission Date: 20110219
  Serious: No
  Sender: FDA-Public Use
  Company Number: US-WYE-H10098909

PATIENT
  Sex: Female
  Weight: 63.56 kg

DRUGS (3)
  1. PREMARIN [Suspect]
     Indication: OSTEOPOROSIS
     Dosage: 0.625 MG
     Route: 048
     Dates: start: 20010101, end: 20090706
  2. PREMARIN [Suspect]
     Indication: PROPHYLAXIS
     Dosage: 0.3 MG DAILY
     Route: 048
     Dates: start: 20090707
  3. TOPROL-XL [Concomitant]

REACTIONS (2)
  - DRUG EFFECT DECREASED [None]
  - FATIGUE [None]
